FAERS Safety Report 5698528-X (Version None)
Quarter: 2008Q2

REPORT INFORMATION
  Report Type: 
  Country: None (occurrence: None)
  Receive Date: 20080408
  Receipt Date: 20060712
  Transmission Date: 20081010
  Serious: Yes (Other)
  Sender: FDA-Public Use
  Company Number: US-BAYER-US-2006-018694

PATIENT
  Sex: Female

DRUGS (2)
  1. CLIMARA [Suspect]
  2. ESTRADERM [Suspect]

REACTIONS (1)
  - OVARIAN CANCER [None]
